FAERS Safety Report 19748787 (Version 1)
Quarter: 2021Q3

REPORT INFORMATION
  Report Type: Other
  Country: CN (occurrence: CN)
  Receive Date: 20210826
  Receipt Date: 20210826
  Transmission Date: 20211014
  Serious: Yes (Death)
  Sender: FDA-Public Use
  Company Number: CN-ROCHE-2898413

PATIENT

DRUGS (4)
  1. OXALIPLATIN. [Suspect]
     Active Substance: OXALIPLATIN
     Indication: GASTRIC CANCER
     Dosage: DAY 1 OF EVERY 3 WEEKS FOR 4 TO 6 CYCLES
     Route: 042
  2. CAPECITABINE. [Suspect]
     Active Substance: CAPECITABINE
     Indication: GASTRIC CANCER
     Dosage: DAY 1 TO 14, FOLLOWED BY 7 DAYS OFF
     Route: 048
  3. CAMRELIZUMAB [Suspect]
     Active Substance: CAMRELIZUMAB
     Indication: GASTRIC CANCER
     Dosage: OVER 30 MINUTES
     Route: 042
  4. APATINIB MESYLATE [Suspect]
     Active Substance: APATINIB
     Indication: GASTRIC CANCER
     Dosage: ORALLY ON DAYS 1?21 OF EACH 3?WEEK CYCLE.
     Route: 048

REACTIONS (2)
  - Hepatic function abnormal [Fatal]
  - Interstitial lung disease [Fatal]
